FAERS Safety Report 13042379 (Version 1)
Quarter: 2016Q4

REPORT INFORMATION
  Report Type: Spontaneous
  Country: CA (occurrence: US)
  Receive Date: 20161219
  Receipt Date: 20161219
  Transmission Date: 20170207
  Serious: No
  Sender: FDA-Public Use
  Company Number: US-XTTRIUM LABORATORIES, INC-1060996

PATIENT
  Age: 54 Year
  Sex: Female

DRUGS (1)
  1. CHLORHEXIDINE GLUCONATE. [Suspect]
     Active Substance: CHLORHEXIDINE GLUCONATE
     Route: 002
     Dates: start: 20161101, end: 20161101

REACTIONS (1)
  - Gingival pruritus [None]

NARRATIVE: CASE EVENT DATE: 20161101
